FAERS Safety Report 10563345 (Version 12)
Quarter: 2015Q2

REPORT INFORMATION
  Report Type: Spontaneous
  Country: US (occurrence: US)
  Receive Date: 20141104
  Receipt Date: 20150616
  Transmission Date: 20150821
  Serious: Yes (Hospitalization, Other)
  Sender: FDA-Public Use
  Company Number: US-PFIZER INC-2014303741

PATIENT
  Age: 72 Year
  Sex: Female
  Weight: 64 kg

DRUGS (13)
  1. TRAZODONE [Concomitant]
     Active Substance: TRAZODONE HYDROCHLORIDE
     Dosage: 50 MG, UNK
  2. SUTENT [Suspect]
     Active Substance: SUNITINIB MALATE
     Dosage: UNK, 1X/DAY
     Dates: start: 201410
  3. NYSTATIN. [Concomitant]
     Active Substance: NYSTATIN
     Dosage: 100000 IU, UNK
  4. LORAZEPAM. [Concomitant]
     Active Substance: LORAZEPAM
     Dosage: 0.5 MG, UNK
  5. LEVOTHYROXINE [Concomitant]
     Active Substance: LEVOTHYROXINE
     Dosage: UNK
  6. ZOFRAN [Concomitant]
     Active Substance: ONDANSETRON HYDROCHLORIDE
     Dosage: UNK
  7. ATIVAN [Concomitant]
     Active Substance: LORAZEPAM
     Dosage: UNK
  8. TRAMADOL [Concomitant]
     Active Substance: TRAMADOL
     Dosage: UNK, AS NEEDED
  9. FUROSEMIDE. [Concomitant]
     Active Substance: FUROSEMIDE
     Dosage: 40 MG, UNK
  10. ONDANSETRON [Concomitant]
     Active Substance: ONDANSETRON
  11. SUTENT [Suspect]
     Active Substance: SUNITINIB MALATE
     Indication: RENAL CELL CARCINOMA STAGE IV
     Dosage: 50 MG, CYCLIC (4 WEEKS ON, 2 WEEKS OFF)
     Dates: start: 20141009, end: 20150313
  12. SUTENT [Suspect]
     Active Substance: SUNITINIB MALATE
     Dosage: 50 MG, DAILY
     Dates: start: 20141009, end: 20150313
  13. DEXAMETHASON [Concomitant]
     Active Substance: DEXAMETHASONE
     Dosage: 2 MG, UNK

REACTIONS (42)
  - Pain [Not Recovered/Not Resolved]
  - Asthenia [Unknown]
  - Abdominal pain [Unknown]
  - Dry mouth [Unknown]
  - Candida infection [Unknown]
  - Fatigue [Unknown]
  - Stomatitis [Unknown]
  - Dysphonia [Unknown]
  - Rash [Unknown]
  - Dry skin [Unknown]
  - Vomiting [Unknown]
  - Glossodynia [Unknown]
  - Musculoskeletal pain [Unknown]
  - Onychomycosis [Unknown]
  - Palmar-plantar erythrodysaesthesia syndrome [Unknown]
  - Dysgeusia [Unknown]
  - Nausea [Unknown]
  - Peripheral swelling [Recovered/Resolved]
  - Dehydration [Recovered/Resolved]
  - Diarrhoea [Unknown]
  - Breast pain [Unknown]
  - Insomnia [Unknown]
  - Joint swelling [Recovered/Resolved]
  - Constipation [Unknown]
  - Decreased appetite [Unknown]
  - Anxiety [Unknown]
  - Haemorrhoids [Unknown]
  - Peripheral swelling [Not Recovered/Not Resolved]
  - Chromaturia [Unknown]
  - Headache [Unknown]
  - Nasopharyngitis [Unknown]
  - Weight decreased [Recovering/Resolving]
  - Malaise [Recovered/Resolved]
  - Oral pain [Unknown]
  - Blood glucose increased [Unknown]
  - Depression [Unknown]
  - Gout [Unknown]
  - Confusional state [Unknown]
  - Dizziness [Unknown]
  - Abdominal pain upper [Unknown]
  - Hypertension [Unknown]
  - Haemoptysis [Unknown]

NARRATIVE: CASE EVENT DATE: 2014
